FAERS Safety Report 4498947-3 (Version None)
Quarter: 2004Q4

REPORT INFORMATION
  Report Type: 
  Country: None (occurrence: None)
  Receive Date: 20041108
  Receipt Date: 20041022
  Transmission Date: 20050328
  Serious: Yes (Other)
  Sender: FDA-Public Use
  Company Number: 2004240387BR

PATIENT
  Age: 59 Year
  Sex: Female

DRUGS (1)
  1. BEXTRA [Suspect]
     Indication: MUSCULOSKELETAL PAIN
     Dosage: 40 MG, QD, ORAL
     Route: 048
     Dates: start: 20040101, end: 20040101

REACTIONS (4)
  - DERMATITIS EXFOLIATIVE [None]
  - ERYTHEMA [None]
  - HYPERSENSITIVITY [None]
  - PRURITUS GENERALISED [None]
